FAERS Safety Report 14480388 (Version 1)
Quarter: 2018Q1

REPORT INFORMATION
  Report Type: Spontaneous
  Country: JP (occurrence: JP)
  Receive Date: 20180202
  Receipt Date: 20180202
  Transmission Date: 20180509
  Serious: Yes (Other)
  Sender: FDA-Public Use
  Company Number: PHJP2018JP002248

PATIENT
  Age: 79 Year
  Sex: Female

DRUGS (2)
  1. VOTRIENT [Suspect]
     Active Substance: PAZOPANIB HYDROCHLORIDE
     Indication: RENAL CANCER METASTATIC
     Dosage: 600 MG, UNK
     Route: 048
     Dates: start: 20170802, end: 20170807
  2. VOTRIENT [Suspect]
     Active Substance: PAZOPANIB HYDROCHLORIDE
     Dosage: 400 MG, UNK
     Route: 048
     Dates: start: 20170808, end: 20170813

REACTIONS (9)
  - Cholecystitis [Unknown]
  - Infection [Unknown]
  - Decreased appetite [Unknown]
  - Mucous membrane disorder [Unknown]
  - Pyrexia [Unknown]
  - Diarrhoea [Recovered/Resolved]
  - Bacterial translocation [Unknown]
  - Drug eruption [Unknown]
  - Malaise [Unknown]

NARRATIVE: CASE EVENT DATE: 20170808
